FAERS Safety Report 15842645 (Version 2)
Quarter: 2019Q2

REPORT INFORMATION
  Report Type: Spontaneous
  Country: NL (occurrence: NL)
  Receive Date: 20190118
  Receipt Date: 20190415
  Transmission Date: 20190711
  Serious: Yes (Hospitalization)
  Sender: FDA-Public Use
  Company Number: NL-009507513-1901NLD004931

PATIENT
  Age: 13 Year
  Sex: Female
  Weight: 51 kg

DRUGS (2)
  1. RIZATRIPTAN BENZOATE. [Suspect]
     Active Substance: RIZATRIPTAN BENZOATE
     Indication: MIGRAINE
     Dosage: IF NECESSARY 1 MELTING TABLET
     Route: 060
     Dates: start: 20181209, end: 20181209
  2. MELATONIN [Concomitant]
     Active Substance: MELATONIN
     Dosage: 2 DOSAGE FORM

REACTIONS (6)
  - Somnolence [Recovered/Resolved]
  - Agitation [Recovered/Resolved]
  - Tremor [Recovered/Resolved]
  - Dysarthria [Recovered/Resolved]
  - Respiration abnormal [Recovered/Resolved]
  - Confusional state [Recovered/Resolved]

NARRATIVE: CASE EVENT DATE: 20181209
